FAERS Safety Report 25031411 (Version 3)
Quarter: 2025Q1

REPORT INFORMATION
  Report Type: Spontaneous
  Country: KR (occurrence: KR)
  Receive Date: 20250303
  Receipt Date: 20250321
  Transmission Date: 20250408
  Serious: Yes (Hospitalization, Other)
  Sender: BIOVITRUM
  Company Number: KR-BIOVITRUM-2025-KR-002769

PATIENT
  Age: 42 Year
  Sex: Female

DRUGS (14)
  1. AVATROMBOPAG [Suspect]
     Active Substance: AVATROMBOPAG
     Indication: Immune thrombocytopenia
     Dates: start: 20250127, end: 20250204
  2. AVATROMBOPAG [Suspect]
     Active Substance: AVATROMBOPAG
     Dates: start: 20250205, end: 20250218
  3. AVATROMBOPAG [Suspect]
     Active Substance: AVATROMBOPAG
     Dates: start: 20250219, end: 20250226
  4. LEVOTHYROXINE SODIUM [Concomitant]
     Active Substance: LEVOTHYROXINE SODIUM
     Indication: Product used for unknown indication
  5. LEVOTHYROXINE SODIUM [Concomitant]
     Active Substance: LEVOTHYROXINE SODIUM
  6. ACETAMINOPHEN 325 MG/ TRAMADOL HYDROCHLORIDE 37.5 MG [Concomitant]
     Indication: Product used for unknown indication
  7. FIMASARTAN POTASSIUM TRIHYDRATE [Concomitant]
     Active Substance: FIMASARTAN POTASSIUM TRIHYDRATE
     Indication: Product used for unknown indication
  8. DRIED FERROUS SULFATE [Concomitant]
     Indication: Product used for unknown indication
  9. ETHINYL ESTRADIOL 0.03MG/ GESTODENE 0.075MG [Concomitant]
     Indication: Product used for unknown indication
  10. MAGNESIUM HYDROXIDE [Concomitant]
     Active Substance: MAGNESIUM HYDROXIDE
     Indication: Product used for unknown indication
  11. RABEPRAZOLE SODIUM [Concomitant]
     Active Substance: RABEPRAZOLE SODIUM
     Indication: Product used for unknown indication
  12. SULFAMETHOXAZOLE 400 MG/ TRIMETHOPRIM 80 MG [Concomitant]
     Indication: Product used for unknown indication
  13. CHOLECALCIFEROL CONCETRATED GRANULE 10?/CALCIUM CARBONATE 95 PERCENT G [Concomitant]
     Indication: Product used for unknown indication
  14. PREDNISOLONE [Concomitant]
     Active Substance: PREDNISOLONE
     Indication: Product used for unknown indication

REACTIONS (1)
  - Embolism [Recovering/Resolving]

NARRATIVE: CASE EVENT DATE: 20250223
